FAERS Safety Report 10027834 (Version 3)
Quarter: 2014Q2

REPORT INFORMATION
  Report Type: Report from Study
  Country: BE (occurrence: BE)
  Receive Date: 20140321
  Receipt Date: 20140526
  Transmission Date: 20141212
  Serious: Yes (Hospitalization)
  Sender: FDA-Public Use
  Company Number: BE-ROCHE-1347270

PATIENT
  Age: 60 Year
  Sex: Male

DRUGS (21)
  1. TARADYL [Suspect]
     Indication: PRODUCT USED FOR UNKNOWN INDICATION
     Route: 065
  2. RITUXIMAB [Suspect]
     Indication: MANTLE CELL LYMPHOMA
     Route: 041
     Dates: start: 20130920
  3. RITUXIMAB [Suspect]
     Route: 041
     Dates: start: 20131121
  4. RITUXIMAB [Suspect]
     Route: 065
     Dates: start: 20120716
  5. RITUXIMAB [Suspect]
     Route: 065
     Dates: start: 20121022
  6. SIMVASTATIN [Concomitant]
     Dosage: PER DAY
     Route: 065
  7. ASAFLOW [Concomitant]
     Dosage: PER DAY
     Route: 065
  8. OMEPRAZOLE [Concomitant]
     Dosage: DAY
     Route: 065
  9. DAFALGAN [Concomitant]
     Route: 065
  10. LYRICA [Concomitant]
     Route: 065
  11. OXYCONTIN [Concomitant]
     Route: 065
  12. ACICLOVIR [Concomitant]
     Dosage: DAY
     Route: 065
  13. CIALIS [Concomitant]
     Dosage: AS NEEDED
     Route: 065
  14. INSULIN [Concomitant]
  15. DEXAMETHASONE [Concomitant]
     Route: 065
     Dates: start: 20120716
  16. CYTARABINE [Concomitant]
     Route: 065
     Dates: start: 20120716
  17. CYTARABINE [Concomitant]
     Route: 065
     Dates: start: 20121022
  18. CISPLATIN [Concomitant]
     Route: 065
     Dates: start: 20120716
  19. CARMUSTINE [Concomitant]
     Route: 065
     Dates: start: 20121022
  20. ETOPOSIDE [Concomitant]
     Route: 065
     Dates: start: 20121022
  21. MELPHALAN [Concomitant]
     Route: 065
     Dates: start: 20121022

REACTIONS (5)
  - Neutropenia [Recovered/Resolved]
  - Post procedural sepsis [Recovered/Resolved]
  - Incision site cellulitis [Recovered/Resolved]
  - Renal failure [Recovered/Resolved]
  - Disseminated intravascular coagulation [Recovered/Resolved]
